FAERS Safety Report 11429557 (Version 1)
Quarter: 2015Q3

REPORT INFORMATION
  Report Type: Spontaneous
  Country: US (occurrence: US)
  Receive Date: 20150828
  Receipt Date: 20150828
  Transmission Date: 20151125
  Serious: No
  Sender: FDA-Public Use
  Company Number: US-ROCHE-1205907

PATIENT
  Sex: Male

DRUGS (3)
  1. PEGASYS [Suspect]
     Active Substance: PEGINTERFERON ALFA-2A
     Indication: HEPATITIS C
     Route: 058
     Dates: start: 20130308
  2. INCIVEK [Suspect]
     Active Substance: TELAPREVIR
     Indication: HEPATITIS C
     Route: 065
     Dates: start: 20130308
  3. RIBAVIRIN. [Suspect]
     Active Substance: RIBAVIRIN
     Indication: HEPATITIS C
     Dosage: DIVIDED DOSE
     Route: 048
     Dates: start: 20130308

REACTIONS (16)
  - Nausea [Unknown]
  - Influenza like illness [Not Recovered/Not Resolved]
  - Pain [Unknown]
  - Bronchitis [Unknown]
  - Chills [Unknown]
  - Injection site erythema [Unknown]
  - Impatience [Unknown]
  - Vision blurred [Unknown]
  - Irritability [Unknown]
  - Rash [Unknown]
  - Cough [Unknown]
  - Blister [Unknown]
  - Pyrexia [Unknown]
  - Injection site bruising [Unknown]
  - Impaired healing [Not Recovered/Not Resolved]
  - Haemorrhoids [Unknown]
